FAERS Safety Report 10243003 (Version 2)
Quarter: 2014Q4

REPORT INFORMATION
  Report Type: Spontaneous
  Country: PL (occurrence: PL)
  Receive Date: 20140618
  Receipt Date: 20141003
  Transmission Date: 20150528
  Serious: Yes (Hospitalization, Other)
  Sender: FDA-Public Use
  Company Number: PL-BRISTOL-MYERS SQUIBB COMPANY-20958401

PATIENT
  Age: 58 Year
  Sex: Male

DRUGS (3)
  1. FUROSEMIDE. [Concomitant]
     Active Substance: FUROSEMIDE
     Dates: start: 201401, end: 201404
  2. SPRYCEL [Suspect]
     Active Substance: DASATINIB
     Indication: CHRONIC MYELOID LEUKAEMIA
     Dosage: MAY13:80MG DAILY; AUG13:100MG
     Route: 048
     Dates: start: 201102, end: 201402
  3. ENCORTON [Concomitant]
     Active Substance: PREDNISONE
     Dosage: 20 MG FEBRUARY 2014 TO MAY 2014
     Dates: start: 201401

REACTIONS (6)
  - Pneumothorax [Unknown]
  - Pericardial effusion [Recovered/Resolved]
  - Leukocytosis [Unknown]
  - Pleural effusion [Recovered/Resolved]
  - Upper respiratory tract infection [Unknown]
  - Atelectasis [Recovered/Resolved]

NARRATIVE: CASE EVENT DATE: 201102
